FAERS Safety Report 9410024 (Version 1)
Quarter: 2013Q3

REPORT INFORMATION
  Report Type: Spontaneous
  Country: AU (occurrence: AU)
  Receive Date: 20130719
  Receipt Date: 20130719
  Transmission Date: 20140515
  Serious: Yes (Death)
  Sender: FDA-Public Use
  Company Number: AU-PFIZER INC-2013211701

PATIENT
  Age: 76 Year
  Sex: Female

DRUGS (6)
  1. OLMETEC [Suspect]
     Dosage: 20 MG, DAILY
     Route: 048
  2. GLIPIZIDE [Suspect]
     Dosage: 60 MG, UNK
     Route: 065
  3. METFORMIN HCL [Suspect]
     Dosage: 2000 MG, TWICE DAILY
     Route: 048
     Dates: end: 20130319
  4. VERAPAMIL HYDROCHLORIDE [Suspect]
     Dosage: 180 MG, TWICE DAILY
     Route: 065
  5. ASPIRIN [Concomitant]
     Route: 065
  6. FERROUS SULPHATE [Concomitant]
     Dosage: 1 DF, DAILY
     Route: 065

REACTIONS (6)
  - Embolic stroke [Fatal]
  - Hypoglycaemia [Fatal]
  - Hyperkalaemia [Fatal]
  - Renal failure acute [Fatal]
  - Vomiting [Unknown]
  - Diarrhoea [Unknown]
